FAERS Safety Report 23254484 (Version 1)
Quarter: 2023Q4

REPORT INFORMATION
  Report Type: Spontaneous
  Country: US (occurrence: US)
  Receive Date: 20231202
  Receipt Date: 20231202
  Transmission Date: 20240110
  Serious: No
  Sender: FDA-Public Use
  Company Number: US-PURDUE-USA-2023-0303021

PATIENT
  Sex: Female

DRUGS (6)
  1. HYDROCODONE BITARTRATE [Suspect]
     Active Substance: HYDROCODONE BITARTRATE
     Indication: Pain in extremity
     Dosage: UNK
     Route: 065
  2. SKELAXIN [Suspect]
     Active Substance: METAXALONE
     Indication: Pain in extremity
     Dosage: UNK
     Route: 065
  3. REMODULIN [Concomitant]
     Active Substance: TREPROSTINIL
     Indication: Pulmonary arterial hypertension
     Dosage: 0.007 ?G/KG
     Route: 058
     Dates: start: 202305
  4. REMODULIN [Concomitant]
     Active Substance: TREPROSTINIL
     Dosage: 0.02065 ?G/KG
     Route: 058
     Dates: start: 202305
  5. REMODULIN [Concomitant]
     Active Substance: TREPROSTINIL
     Dosage: 0.02308 ?G/KG
     Route: 058
  6. REMODULIN [Concomitant]
     Active Substance: TREPROSTINIL
     Dosage: UNK
     Route: 058

REACTIONS (1)
  - Inadequate analgesia [Unknown]
